FAERS Safety Report 25746058 (Version 1)
Quarter: 2025Q3

REPORT INFORMATION
  Report Type: Spontaneous
  Country: US (occurrence: US)
  Receive Date: 20250901
  Receipt Date: 20250901
  Transmission Date: 20251020
  Serious: No
  Sender: MERCK SHARP & DOHME LLC
  Company Number: US-009507513-2321652

PATIENT
  Age: 44 Year
  Sex: Female

DRUGS (4)
  1. IMIPENEM [Suspect]
     Active Substance: IMIPENEM
  2. IMIPENEM [Suspect]
     Active Substance: IMIPENEM
  3. LINEZOLID [Suspect]
     Active Substance: LINEZOLID
  4. OMADACYCLINE [Suspect]
     Active Substance: OMADACYCLINE

REACTIONS (2)
  - Adverse drug reaction [Unknown]
  - Drug intolerance [Unknown]
